FAERS Safety Report 5961932-6 (Version None)
Quarter: 2008Q4

REPORT INFORMATION
  Report Type: 
  Country: None (occurrence: None)
  Receive Date: 20081121
  Receipt Date: 20081113
  Transmission Date: 20090506
  Serious: Yes (Hospitalization)
  Sender: FDA-Public Use
  Company Number: JP-ELI_LILLY_AND_COMPANY-JP200807002730

PATIENT
  Sex: Male
  Weight: 59.2 kg

DRUGS (5)
  1. GEMCITABINE HCL [Suspect]
     Indication: BILE DUCT CANCER STAGE IV
     Dosage: 1000 MG, OTHER
     Route: 042
     Dates: start: 20070705, end: 20080131
  2. DECADRON /00016002/ [Concomitant]
     Indication: PROPHYLAXIS
     Dosage: 8 MG, UNK
     Route: 042
     Dates: start: 20070705, end: 20080218
  3. KYTRIL /01178102/ [Concomitant]
     Indication: PROPHYLAXIS
     Dosage: 3 MG, UNK
     Route: 042
     Dates: start: 20070705, end: 20080218
  4. PROMAC /01312301/ [Concomitant]
     Indication: PROPHYLAXIS
     Dosage: 150 MG, DAILY (1/D)
     Route: 048
     Dates: start: 20070705, end: 20080522
  5. OMEPRAL [Concomitant]
     Indication: PROPHYLAXIS
     Dosage: 20 MG, DAILY (1/D)
     Route: 048
     Dates: start: 20070726, end: 20080522

REACTIONS (1)
  - PANCREATIC ENZYMES INCREASED [None]
